FAERS Safety Report 23363464 (Version 1)
Quarter: 2024Q1

REPORT INFORMATION
  Report Type: Spontaneous
  Country: GB (occurrence: GB)
  Receive Date: 20240103
  Receipt Date: 20240103
  Transmission Date: 20240410
  Serious: Yes (Other)
  Sender: FDA-Public Use
  Company Number: None

PATIENT
  Age: 18 Year
  Sex: Male
  Weight: 68 kg

DRUGS (1)
  1. DOXYCYCLINE [Suspect]
     Active Substance: DOXYCYCLINE
     Indication: Acne
     Dosage: UNK
     Dates: start: 20230907, end: 2023

REACTIONS (2)
  - Erectile dysfunction [Unknown]
  - Loss of libido [Recovering/Resolving]

NARRATIVE: CASE EVENT DATE: 20231024
